FAERS Safety Report 14008738 (Version 1)
Quarter: 2017Q3

REPORT INFORMATION
  Report Type: Spontaneous
  Country: BR (occurrence: BR)
  Receive Date: 20170925
  Receipt Date: 20170925
  Transmission Date: 20171128
  Serious: Yes (Other)
  Sender: FDA-Public Use
  Company Number: BR-PFIZER INC-2017407017

PATIENT
  Sex: Female

DRUGS (1)
  1. DOSTINEX [Suspect]
     Active Substance: CABERGOLINE
     Dosage: 0.5 MG, WEEKLY
     Dates: start: 20150330

REACTIONS (3)
  - Pituitary enlargement [Recovered/Resolved]
  - Blindness [Recovered/Resolved]
  - Drug ineffective [Recovered/Resolved]
